FAERS Safety Report 15200270 (Version 1)
Quarter: 2018Q3

REPORT INFORMATION
  Report Type: Spontaneous
  Country: ES (occurrence: ES)
  Receive Date: 20180726
  Receipt Date: 20180726
  Transmission Date: 20181010
  Serious: Yes (Hospitalization)
  Sender: FDA-Public Use
  Company Number: ES-TEVA-2018-ES-929188

PATIENT
  Age: 77 Year
  Sex: Female
  Weight: 73 kg

DRUGS (2)
  1. TRAMADOL HIDROCLORURO [Suspect]
     Active Substance: TRAMADOL HYDROCHLORIDE
     Indication: BACK PAIN
     Dosage: || UNIT DOSE FREQUENCY: 150 MG?MILLIGRAMS | | DOSE PER SHOT: 50 MG?MILLIGRAMS | | NUMBER OF OUTLETS
     Route: 048
     Dates: start: 20170514, end: 20170515
  2. RIVOTRIL [Interacting]
     Active Substance: CLONAZEPAM
     Indication: BACK PAIN
     Dosage: 12.5 MILLIGRAM DAILY; || UNIT DOSE FREQUENCY: 12.5 MG?MILLIGRAMS | | FREQUENCY UNIT: 1 DAY
     Route: 048
     Dates: start: 20170514, end: 20170515

REACTIONS (4)
  - Drug interaction [Recovered/Resolved]
  - Fall [Recovered/Resolved]
  - Transcription medication error [Recovered/Resolved]
  - Somnolence [Recovered/Resolved]

NARRATIVE: CASE EVENT DATE: 20170516
